FAERS Safety Report 8262234-8 (Version None)
Quarter: 2012Q2

REPORT INFORMATION
  Report Type: 
  Country: None (occurrence: None)
  Receive Date: 20120405
  Receipt Date: 20120322
  Transmission Date: 20120825
  Serious: Yes (Death)
  Sender: FDA-Public Use
  Company Number: HR-ROCHE-1055856

PATIENT
  Sex: Male

DRUGS (1)
  1. ALTEPLASE [Suspect]
     Indication: ISCHAEMIC STROKE
     Dosage: 0.9 MG/KG BODY WEIGHT (MAXIMUM DOSE 90 MG) WITH 1/10 OF THE TOTAL DOSE GIVEN AS BOLUS AND THE REMAIN
     Route: 042

REACTIONS (1)
  - CEREBRAL INFARCTION [None]
